FAERS Safety Report 15576699 (Version 1)
Quarter: 2018Q4

REPORT INFORMATION
  Report Type: Spontaneous
  Country: US (occurrence: US)
  Receive Date: 20181101
  Receipt Date: 20181101
  Transmission Date: 20190205
  Serious: No
  Sender: FDA-Public Use
  Company Number: US-GLAXOSMITHKLINE-US2018195757

PATIENT
  Age: 29 Year
  Sex: Female

DRUGS (1)
  1. TRANSDERM SCOP [Suspect]
     Active Substance: SCOPOLAMINE
     Indication: VERTIGO
     Dosage: UNK
     Dates: start: 20181017, end: 20181022

REACTIONS (3)
  - Vision blurred [Not Recovered/Not Resolved]
  - Product use in unapproved indication [Unknown]
  - Mydriasis [Unknown]

NARRATIVE: CASE EVENT DATE: 20181022
